FAERS Safety Report 7145757-4 (Version None)
Quarter: 2010Q4

REPORT INFORMATION
  Report Type: 
  Country: None (occurrence: None)
  Receive Date: 20101208
  Receipt Date: 20101124
  Transmission Date: 20110411
  Serious: Yes (Congenital Anomaly)
  Sender: FDA-Public Use
  Company Number: A0687237A

PATIENT
  Sex: Female
  Weight: 3.3 kg

DRUGS (5)
  1. PAXIL [Suspect]
     Indication: ANXIETY
     Dosage: 40MG PER DAY
     Dates: start: 20030101, end: 20051127
  2. FLUOXETINE [Concomitant]
     Dates: start: 20051207, end: 20060321
  3. PRENATE [Concomitant]
     Dates: start: 20060301, end: 20060401
  4. TYLENOL-500 [Concomitant]
  5. PEPCID [Concomitant]

REACTIONS (10)
  - ATRIAL SEPTAL DEFECT [None]
  - CARDIAC DISORDER [None]
  - CARDIAC MURMUR [None]
  - CARDIAC VALVE DISEASE [None]
  - DRUG EXPOSURE DURING PREGNANCY [None]
  - HEART DISEASE CONGENITAL [None]
  - LEFT VENTRICULAR HYPERTROPHY [None]
  - PULMONARY MALFORMATION [None]
  - PULMONARY VALVE STENOSIS [None]
  - TRANSIENT TACHYPNOEA OF THE NEWBORN [None]
